FAERS Safety Report 7804850-0 (Version None)
Quarter: 2011Q4

REPORT INFORMATION
  Report Type: 
  Country: None (occurrence: None)
  Receive Date: 20111010
  Receipt Date: 20111003
  Transmission Date: 20120403
  Serious: Yes (Other)
  Sender: FDA-Public Use
  Company Number: US-UCBSA-041344

PATIENT
  Age: 54 Year
  Sex: Female
  Weight: 62.1 kg

DRUGS (3)
  1. TRAZODONE HCL [Concomitant]
     Indication: INSOMNIA
     Dosage: ONE AT HS
     Route: 048
  2. TEMAZEPAM [Concomitant]
     Indication: INSOMNIA
     Dosage: ONE AT HS
     Route: 048
  3. CIMZIA [Suspect]
     Indication: CROHN'S DISEASE
     Route: 058
     Dates: start: 20091001, end: 20110801

REACTIONS (1)
  - TUBERCULOSIS [None]
